APPROVED DRUG PRODUCT: MEROPENEM
Active Ingredient: MEROPENEM
Strength: 1GM/VIAL
Dosage Form/Route: INJECTABLE;INJECTION
Application: A206141 | Product #002 | TE Code: AP
Applicant: GLAND PHARMA LTD
Approved: Jun 8, 2016 | RLD: No | RS: No | Type: RX